FAERS Safety Report 11236297 (Version 1)
Quarter: 2015Q3

REPORT INFORMATION
  Report Type: Other
  Country: IT (occurrence: IT)
  Receive Date: 20150702
  Receipt Date: 20150702
  Transmission Date: 20151125
  Serious: Yes (Hospitalization, Other)
  Sender: FDA-Public Use
  Company Number: IT-SYMPLMED PHARMACEUTICALS-2013SYMPLMED000026

PATIENT

DRUGS (4)
  1. REAPTAN [Suspect]
     Active Substance: AMLODIPINE BESYLATE
     Indication: PRODUCT USED FOR UNKNOWN INDICATION
     Dosage: 5 TABLETS, ONCE
     Route: 048
     Dates: start: 20130405, end: 20130405
  2. REAPTAN [Suspect]
     Active Substance: AMLODIPINE BESYLATE
     Indication: PRODUCT USED FOR UNKNOWN INDICATION
     Dosage: 5 TABLETS, ONCE
     Route: 048
     Dates: start: 20130405, end: 20130405
  3. RYTMONORM [Suspect]
     Active Substance: PROPAFENONE
     Indication: PRODUCT USED FOR UNKNOWN INDICATION
     Dosage: 3 TABLETS, ONCE
     Route: 048
     Dates: start: 20130405, end: 20130405
  4. REAPTAN [Suspect]
     Active Substance: AMLODIPINE BESYLATE
     Dosage: 5 TABLETS, ONCE
     Route: 048
     Dates: start: 20130405, end: 20130405

REACTIONS (5)
  - Accidental overdose [Recovered/Resolved]
  - Electrocardiogram QT prolonged [Recovered/Resolved]
  - Hypotension [Recovered/Resolved]
  - Vomiting [Recovered/Resolved]
  - Dizziness [Recovered/Resolved]

NARRATIVE: CASE EVENT DATE: 20130405
